FAERS Safety Report 10461860 (Version 1)
Quarter: 2014Q3

REPORT INFORMATION
  Report Type: Spontaneous
  Country: US (occurrence: US)
  Receive Date: 20140918
  Receipt Date: 20140918
  Transmission Date: 20150326
  Serious: No
  Sender: FDA-Public Use
  Company Number: US-009507513-1409USA003751

PATIENT
  Age: 73 Year
  Sex: Female

DRUGS (1)
  1. TICE BCG [Suspect]
     Active Substance: BACILLUS CALMETTE-GUERIN SUBSTRAIN TICE LIVE ANTIGEN
     Indication: BLADDER CANCER
     Dosage: UNK

REACTIONS (5)
  - Pain [Unknown]
  - Discomfort [Unknown]
  - Drug dose omission [Unknown]
  - Muscle spasms [Unknown]
  - No adverse event [Unknown]

NARRATIVE: CASE EVENT DATE: 2014
